FAERS Safety Report 5893018-3 (Version None)
Quarter: 2008Q3

REPORT INFORMATION
  Report Type: 
  Country: None (occurrence: None)
  Receive Date: 20080923
  Receipt Date: 20071108
  Transmission Date: 20090109
  Serious: No
  Sender: FDA-Public Use
  Company Number: US-ASTRAZENECA-2007UW02099

PATIENT
  Sex: Female

DRUGS (2)
  1. SEROQUEL [Suspect]
     Route: 048
     Dates: start: 19970101, end: 20060101
  2. RISPERDAL [Concomitant]
     Dates: start: 20070101

REACTIONS (3)
  - HYPERTENSION [None]
  - THYROID DISORDER [None]
  - TYPE 1 DIABETES MELLITUS [None]
